FAERS Safety Report 5633643-8 (Version None)
Quarter: 2008Q1

REPORT INFORMATION
  Report Type: 
  Country: None (occurrence: None)
  Receive Date: 20080221
  Receipt Date: 20080213
  Transmission Date: 20080703
  Serious: Yes (Other)
  Sender: FDA-Public Use
  Company Number: JP-PFIZER INC-2008014211

PATIENT
  Age: 83 Year
  Sex: Female

DRUGS (1)
  1. SOLU-MEDROL [Suspect]
     Indication: PNEUMONIA
     Dosage: TEXT:TDD:250MG

REACTIONS (1)
  - HYPERGLYCAEMIA [None]
